FAERS Safety Report 9006965 (Version 4)
Quarter: 2013Q1

REPORT INFORMATION
  Report Type: Report from Study
  Country: CA (occurrence: CA)
  Receive Date: 20130110
  Receipt Date: 20130313
  Transmission Date: 20140127
  Serious: Yes (Death, Hospitalization)
  Sender: FDA-Public Use
  Company Number: CA-CELGENEUS-028-22393-13010886

PATIENT
  Age: 53 Year
  Sex: Male
  Weight: 67.5 kg

DRUGS (15)
  1. ISTODAX [Suspect]
     Indication: PERIPHERAL T-CELL LYMPHOMA UNSPECIFIED
     Dosage: 26 MILLIGRAM
     Route: 065
     Dates: start: 20121025, end: 20121206
  2. QUETIAPINE [Concomitant]
     Indication: SLEEP DISORDER
     Dosage: 25 MILLIGRAM
     Route: 065
     Dates: start: 201212
  3. MORPHINE [Concomitant]
     Indication: PRODUCT USED FOR UNKNOWN INDICATION
     Dosage: 7.5 MILLIGRAM
     Route: 058
  4. MORPHINE [Concomitant]
     Dosage: 2.5-10MG
     Route: 058
  5. POTASSIUM CHLORIDE [Concomitant]
     Indication: PRODUCT USED FOR UNKNOWN INDICATION
     Dosage: 8 MMOL
     Route: 065
  6. PANTOPRAZOLE [Concomitant]
     Indication: PRODUCT USED FOR UNKNOWN INDICATION
     Dosage: 40 MILLIGRAM
     Route: 065
     Dates: start: 20121228
  7. GABAPENTIN [Concomitant]
     Indication: NEUROPATHY PERIPHERAL
     Dosage: 200 MILLIGRAM
     Route: 065
     Dates: start: 20121112
  8. FUROSEMIDE [Concomitant]
     Indication: OEDEMA
     Dosage: 20 MILLIGRAM
     Route: 065
     Dates: start: 20121012
  9. GRAVOL [Concomitant]
     Indication: PRODUCT USED FOR UNKNOWN INDICATION
     Route: 065
  10. CITALOPRAM [Concomitant]
     Indication: DEPRESSION
     Dosage: 20 MILLIGRAM
     Route: 065
     Dates: start: 201212
  11. CODEINE [Concomitant]
     Indication: COUGH
     Dosage: 30 MILLIGRAM
     Route: 065
     Dates: start: 20120919
  12. CODEINE [Concomitant]
     Indication: PRURITUS
  13. MESLON [Concomitant]
     Indication: PAIN
     Dosage: 10 MILLIGRAM
     Route: 065
     Dates: start: 201211
  14. MIDAZOLAM [Concomitant]
     Indication: PRODUCT USED FOR UNKNOWN INDICATION
     Route: 041
     Dates: start: 20121231
  15. CELEXA [Concomitant]
     Indication: PRODUCT USED FOR UNKNOWN INDICATION
     Dosage: 20 MILLIGRAM
     Route: 065
     Dates: start: 20121227

REACTIONS (1)
  - Bone marrow failure [Fatal]
